FAERS Safety Report 5028184-5 (Version None)
Quarter: 2006Q2

REPORT INFORMATION
  Report Type: 
  Country: None (occurrence: None)
  Receive Date: 20060613
  Receipt Date: 20060606
  Transmission Date: 20061013
  Serious: Yes (Other)
  Sender: FDA-Public Use
  Company Number: US-2004-036774

PATIENT
  Age: 48 Year
  Sex: Female
  Weight: 67.1 kg

DRUGS (9)
  1. CLIMARA [Suspect]
     Indication: HORMONE REPLACEMENT THERAPY
     Dosage: 0.1 MG/D, CONT, TRANSDERMAL
     Route: 062
     Dates: start: 20000101, end: 20021001
  2. ESTRADIOL [Suspect]
     Indication: HORMONE REPLACEMENT THERAPY
     Dosage: 0.1 MG/D, CONT, TRANSDERMAL
     Route: 062
     Dates: start: 20000101, end: 20010101
  3. VIVELLE-DOT [Suspect]
     Indication: HORMONE REPLACEMENT THERAPY
     Dosage: 0.05 MG, TRANSDERMAL
     Route: 062
     Dates: start: 20000101, end: 20000101
  4. ESTRADERM [Suspect]
     Indication: HORMONE REPLACEMENT THERAPY
     Dosage: 0.05 MG, TRANSDERMAL
     Route: 062
     Dates: start: 19900101, end: 19990101
  5. PROVERA [Suspect]
     Indication: HORMONE REPLACEMENT THERAPY
     Dosage: 10 MG, ORAL
     Route: 048
     Dates: start: 19890101, end: 19990101
  6. PREMARIN [Suspect]
     Indication: HORMONE REPLACEMENT THERAPY
     Dosage: 1.25 MG, ORAL
     Route: 048
     Dates: start: 19890101, end: 19900101
  7. ESCLIM [Suspect]
  8. BUTALBITAL [Concomitant]
  9. ACIPHEX [Concomitant]

REACTIONS (11)
  - BREAST CANCER [None]
  - BREAST CYST [None]
  - BREAST DISORDER FEMALE [None]
  - BREAST MASS [None]
  - BREAST MICROCALCIFICATION [None]
  - CHEST PAIN [None]
  - EMOTIONAL DISORDER [None]
  - IMPAIRED HEALING [None]
  - MAMMOGRAM ABNORMAL [None]
  - OESTROGEN RECEPTOR ASSAY POSITIVE [None]
  - ULTRASOUND SCAN ABNORMAL [None]
